FAERS Safety Report 18252129 (Version 1)
Quarter: 2020Q3

REPORT INFORMATION
  Report Type: Spontaneous
  Country: US (occurrence: US)
  Receive Date: 20200910
  Receipt Date: 20200910
  Transmission Date: 20201103
  Serious: No
  Sender: FDA-Public Use
  Company Number: US-FARMAPROD-202003-0350

PATIENT
  Age: 74 Year
  Sex: Female

DRUGS (1)
  1. OXERVATE [Suspect]
     Active Substance: CENEGERMIN-BKBJ
     Indication: NEUROTROPHIC KERATOPATHY
     Route: 047

REACTIONS (4)
  - Drug ineffective [Unknown]
  - Deposit eye [Unknown]
  - Medication error [Unknown]
  - Product administration error [Unknown]

NARRATIVE: CASE EVENT DATE: 20200214
